FAERS Safety Report 4401542-5 (Version None)
Quarter: 2004Q2

REPORT INFORMATION
  Report Type: 
  Country: None (occurrence: None)
  Receive Date: 20040618
  Receipt Date: 20040406
  Transmission Date: 20050107
  Serious: No
  Sender: FDA-Public Use
  Company Number: US-JNJFOC-20040401815

PATIENT
  Age: 45 Year
  Sex: Female
  Weight: 63.5036 kg

DRUGS (3)
  1. ORTHO EVRA [Suspect]
     Indication: HORMONE LEVEL ABNORMAL
     Dosage: 1 DOSE (S), 1 IN 1 WEEK, TRANSDERMAL
     Route: 062
     Dates: start: 20020101, end: 20040101
  2. ORTHO EVRA [Suspect]
     Indication: HORMONE LEVEL ABNORMAL
     Dosage: 1 DOSE (S), 1 IN 1 WEEK, TRANSDERMAL
     Route: 062
     Dates: start: 20040101
  3. TOPAMAX [Concomitant]

REACTIONS (1)
  - ALOPECIA [None]
